FAERS Safety Report 9877132 (Version 2)
Quarter: 2014Q4

REPORT INFORMATION
  Report Type: Spontaneous
  Country: US (occurrence: US)
  Receive Date: 20140206
  Receipt Date: 20141010
  Transmission Date: 20150529
  Serious: Yes (Hospitalization, Other)
  Sender: FDA-Public Use
  Company Number: US-BAYER-2014-016672

PATIENT
  Age: 46 Year
  Sex: Female
  Weight: 77.98 kg

DRUGS (11)
  1. IBUPROFEN. [Concomitant]
     Active Substance: IBUPROFEN
  2. NAPOXEN [Concomitant]
     Dosage: UNK
     Dates: start: 201105
  3. OCELLA [Suspect]
     Active Substance: DROSPIRENONE\ETHINYL ESTRADIOL
     Indication: CONTRACEPTION
     Dosage: UNK
     Dates: start: 20080119, end: 201207
  4. ALPRAZOLAM. [Concomitant]
     Active Substance: ALPRAZOLAM
     Indication: ANXIETY
     Dosage: UNK
     Dates: start: 2004
  5. ACETAMINOPHEN. [Suspect]
     Active Substance: ACETAMINOPHEN
  6. LOPRESSOR [Concomitant]
     Active Substance: METOPROLOL TARTRATE
     Dosage: 30 MG, BID
  7. SENOKOT [Concomitant]
     Active Substance: SENNOSIDES
  8. YASMIN [Suspect]
     Active Substance: DROSPIRENONE\ETHINYL ESTRADIOL
     Indication: CONTRACEPTION
     Dosage: UNK
     Dates: start: 20060114, end: 20080718
  9. ISOMETHEPTENE [Concomitant]
     Active Substance: ISOMETHEPTENE
     Indication: MIGRAINE
     Dosage: UNK
     Dates: start: 200805
  10. DICHLORALPHENAZONE [Concomitant]
     Active Substance: DICHLORALPHENAZONE
     Indication: MIGRAINE
     Dosage: UNK
     Dates: start: 200805
  11. LISINOPRIL. [Concomitant]
     Active Substance: LISINOPRIL
     Dosage: 10 MG, DAILY

REACTIONS (16)
  - Cerebral infarction [None]
  - Pulmonary embolism [None]
  - Injury [None]
  - VIIth nerve paralysis [None]
  - Emotional distress [None]
  - Dizziness [None]
  - Transient ischaemic attack [None]
  - Deep vein thrombosis [None]
  - Nausea [None]
  - General physical health deterioration [None]
  - Asthenia [None]
  - Cerebrovascular accident [None]
  - Pain [None]
  - Hypoaesthesia [None]
  - Dysarthria [None]
  - Anxiety [None]

NARRATIVE: CASE EVENT DATE: 20120118
